FAERS Safety Report 21613851 (Version 1)
Quarter: 2022Q4

REPORT INFORMATION
  Report Type: Spontaneous
  Country: US (occurrence: None)
  Receive Date: 20221118
  Receipt Date: 20221118
  Transmission Date: 20230112
  Serious: No
  Sender: FDA-Public Use
  Company Number: US-Unichem Pharmaceuticals (USA) Inc-UCM202209-000983

PATIENT
  Age: 59 Year
  Sex: Female
  Weight: 55.34 kg

DRUGS (6)
  1. MEMANTINE [Suspect]
     Active Substance: MEMANTINE
     Indication: Migraine
     Dosage: 5 MG OR 10 MG
  2. AJOVY [Concomitant]
     Active Substance: FREMANEZUMAB-VFRM
     Indication: Headache
  3. PAMELOR [Concomitant]
     Active Substance: NORTRIPTYLINE HYDROCHLORIDE
     Indication: Headache
  4. VERAPAMIL [Concomitant]
     Active Substance: VERAPAMIL HYDROCHLORIDE
     Indication: Headache
  5. VITAMIN B2 [Concomitant]
     Active Substance: RIBOFLAVIN
     Indication: Headache
     Dosage: UNKNOWN
  6. MAGNESIUM [Concomitant]
     Active Substance: MAGNESIUM
     Indication: Headache
     Dosage: UNKNOWN

REACTIONS (2)
  - Faeces discoloured [Not Recovered/Not Resolved]
  - Product use in unapproved indication [Unknown]

NARRATIVE: CASE EVENT DATE: 20220401
